FAERS Safety Report 19218093 (Version 1)
Quarter: 2021Q2

REPORT INFORMATION
  Report Type: Spontaneous
  Country: US (occurrence: US)
  Receive Date: 20210505
  Receipt Date: 20210505
  Transmission Date: 20210717
  Serious: Yes (Hospitalization, Other)
  Sender: FDA-Public Use
  Company Number: US-ASTRAZENECA-2021A367531

PATIENT
  Age: 31614 Day
  Sex: Male
  Weight: 63.5 kg

DRUGS (6)
  1. IMMUNOGLOBULIN IV [Concomitant]
     Active Substance: HUMAN IMMUNOGLOBULIN G
     Indication: CHRONIC LYMPHOCYTIC LEUKAEMIA
     Route: 042
  2. CALQUENCE [Interacting]
     Active Substance: ACALABRUTINIB
     Indication: CHRONIC LYMPHOCYTIC LEUKAEMIA
     Route: 048
  3. VITAMIN B12 [Concomitant]
     Active Substance: CYANOCOBALAMIN
     Indication: CHRONIC LYMPHOCYTIC LEUKAEMIA
  4. CALQUENCE [Suspect]
     Active Substance: ACALABRUTINIB
     Indication: CHRONIC LYMPHOCYTIC LEUKAEMIA
     Route: 048
     Dates: start: 202101
  5. CALQUENCE [Interacting]
     Active Substance: ACALABRUTINIB
     Indication: CHRONIC LYMPHOCYTIC LEUKAEMIA
     Route: 048
  6. MODERNA COVID?19 VACCINE [Interacting]
     Active Substance: CX-024414
     Route: 065
     Dates: start: 20210219

REACTIONS (6)
  - Inhibitory drug interaction [Unknown]
  - Cellulitis [Recovering/Resolving]
  - White blood cell count decreased [Unknown]
  - Ill-defined disorder [Unknown]
  - Product use issue [Unknown]
  - Platelet count decreased [Unknown]

NARRATIVE: CASE EVENT DATE: 20210420
